FAERS Safety Report 9145693 (Version 1)
Quarter: 2013Q1

REPORT INFORMATION
  Report Type: Spontaneous
  Country: IT (occurrence: IT)
  Receive Date: 20130307
  Receipt Date: 20130307
  Transmission Date: 20140127
  Serious: Yes (Other)
  Sender: FDA-Public Use
  Company Number: IT-BRISTOL-MYERS SQUIBB COMPANY-17448150

PATIENT
  Age: 40 Year
  Sex: Female

DRUGS (1)
  1. GLUCOPHAGE TABS 500 MG [Suspect]
     Indication: TYPE 2 DIABETES MELLITUS
     Dosage: 30 COATED TABLET
     Route: 048
     Dates: start: 20130102, end: 20130202

REACTIONS (2)
  - Dysentery [Not Recovered/Not Resolved]
  - Abdominal distension [Not Recovered/Not Resolved]
